FAERS Safety Report 25400792 (Version 1)
Quarter: 2025Q2

REPORT INFORMATION
  Report Type: Other
  Country: NL (occurrence: NL)
  Receive Date: 20250605
  Receipt Date: 20250605
  Transmission Date: 20250716
  Serious: Yes (Other)
  Sender: GLENMARK
  Company Number: None

PATIENT
  Age: 76 Year
  Sex: Female
  Weight: 75 kg

DRUGS (3)
  1. DESLORATADINE [Suspect]
     Active Substance: DESLORATADINE
     Indication: Hypersensitivity
     Dosage: 5 MILLIGRAM, QD (1 X PER DAG 1 TABLET)
     Route: 048
     Dates: start: 20241118, end: 20250102
  2. DESLORATADINE [Suspect]
     Active Substance: DESLORATADINE
  3. DESLORATADINE [Suspect]
     Active Substance: DESLORATADINE

REACTIONS (1)
  - Arrhythmia [Unknown]
